FAERS Safety Report 8446568-X (Version None)
Quarter: 2012Q2

REPORT INFORMATION
  Report Type: 
  Country: None (occurrence: None)
  Receive Date: 20120618
  Receipt Date: 20120607
  Transmission Date: 20120825
  Serious: Yes (Life-Threatening)
  Sender: FDA-Public Use
  Company Number: FR-AMGEN-FRASP2012036663

PATIENT
  Age: 49 Year
  Sex: Male

DRUGS (4)
  1. METHOTREXATE SODIUM [Suspect]
     Dosage: UNK
     Dates: start: 20080101, end: 20110801
  2. METHOTREXATE SODIUM [Suspect]
     Indication: PSORIATIC ARTHROPATHY
     Dosage: UNK
     Dates: start: 20020101, end: 20060301
  3. ENBREL [Suspect]
     Dosage: UNK
     Dates: start: 20061201, end: 20120101
  4. METHOTREXATE SODIUM [Suspect]
     Dosage: UNK
     Dates: start: 20080101, end: 20080801

REACTIONS (2)
  - ACUTE MYELOID LEUKAEMIA [None]
  - NEUTROPENIA [None]
